FAERS Safety Report 12632125 (Version 2)
Quarter: 2016Q3

REPORT INFORMATION
  Report Type: Spontaneous
  Country: US (occurrence: US)
  Receive Date: 20160808
  Receipt Date: 20160808
  Transmission Date: 20161109
  Serious: No
  Sender: FDA-Public Use
  Company Number: US-BEH-2016061944

PATIENT
  Sex: Female
  Weight: 69 kg

DRUGS (14)
  1. EPIPEN [Concomitant]
     Active Substance: EPINEPHRINE
  2. HIZENTRA [Suspect]
     Active Substance: HUMAN IMMUNOGLOBULIN G
     Indication: HYPER IGM SYNDROME
     Route: 058
     Dates: start: 20110118
  3. FLUDROCORTISONE [Concomitant]
     Active Substance: FLUDROCORTISONE
  4. TAMIFLU [Concomitant]
     Active Substance: OSELTAMIVIR PHOSPHATE
  5. ADVAIR HFA [Concomitant]
     Active Substance: FLUTICASONE PROPIONATE\SALMETEROL XINAFOATE
  6. PREVACID [Concomitant]
     Active Substance: LANSOPRAZOLE
  7. COREG [Concomitant]
     Active Substance: CARVEDILOL
  8. PHENERGAN [Concomitant]
     Active Substance: PROMETHAZINE HYDROCHLORIDE
  9. ACETAMINOPHEN. [Concomitant]
     Active Substance: ACETAMINOPHEN
  10. SINGULAIR [Concomitant]
     Active Substance: MONTELUKAST SODIUM
  11. LORATADINE. [Concomitant]
     Active Substance: LORATADINE
  12. XOPENEX [Concomitant]
     Active Substance: LEVALBUTEROL HYDROCHLORIDE
  13. DIPHENHYDRAMINE. [Concomitant]
     Active Substance: DIPHENHYDRAMINE
  14. LIDOCAINE. [Concomitant]
     Active Substance: LIDOCAINE

REACTIONS (1)
  - Sinusitis [Unknown]
